FAERS Safety Report 11115916 (Version 1)
Quarter: 2015Q2

REPORT INFORMATION
  Report Type: Spontaneous
  Country: US (occurrence: None)
  Receive Date: 20150514
  Receipt Date: 20150514
  Transmission Date: 20150821
  Serious: Yes (Other)
  Sender: FDA-Public Use
  Company Number: None

PATIENT
  Age: 56 Year
  Sex: Male

DRUGS (2)
  1. LISINOPRIL. [Concomitant]
     Active Substance: LISINOPRIL
  2. MODERIBA [Suspect]
     Active Substance: RIBAVIRIN
     Indication: PRODUCT USED FOR UNKNOWN INDICATION
     Route: 048
     Dates: start: 20150505, end: 20150506

REACTIONS (20)
  - Nausea [None]
  - Confusional state [None]
  - Feeling jittery [None]
  - Lethargy [None]
  - Hypopnoea [None]
  - Blood pressure increased [None]
  - Heart rate increased [None]
  - Erythema [None]
  - Musculoskeletal stiffness [None]
  - Pain in extremity [None]
  - Respiratory rate increased [None]
  - Jaundice [None]
  - Tic [None]
  - Photosensitivity reaction [None]
  - Sensory disturbance [None]
  - Micturition urgency [None]
  - Tinnitus [None]
  - Tongue discolouration [None]
  - Dyspnoea [None]
  - Nervousness [None]

NARRATIVE: CASE EVENT DATE: 20150505
